FAERS Safety Report 7345455-8 (Version None)
Quarter: 2011Q1

REPORT INFORMATION
  Report Type: 
  Country: None (occurrence: None)
  Receive Date: 20110310
  Receipt Date: 20110301
  Transmission Date: 20110831
  Serious: Yes (Other)
  Sender: FDA-Public Use
  Company Number: GB-PFIZER INC-2011043975

PATIENT
  Age: 37 Year
  Sex: Female

DRUGS (20)
  1. CLONAZEPAM [Suspect]
     Indication: COMPLEX PARTIAL SEIZURES
  2. LACOSAMIDE [Suspect]
     Indication: GRAND MAL CONVULSION
  3. RUFINAMIDE [Suspect]
     Indication: PARTIAL SEIZURES
     Dosage: 1000 MG
  4. CLONAZEPAM [Suspect]
     Indication: DROP ATTACKS
  5. LACOSAMIDE [Suspect]
     Indication: COMPLEX PARTIAL SEIZURES
  6. PHENYTOIN [Suspect]
     Indication: GRAND MAL CONVULSION
  7. CLONAZEPAM [Suspect]
     Indication: GRAND MAL CONVULSION
  8. LACOSAMIDE [Suspect]
     Indication: PARTIAL SEIZURES
     Dosage: 200 MG
  9. PHENYTOIN [Suspect]
     Indication: COMPLEX PARTIAL SEIZURES
  10. LAMOTRIGINE [Suspect]
     Indication: GRAND MAL CONVULSION
  11. RUFINAMIDE [Suspect]
     Indication: DROP ATTACKS
  12. LACOSAMIDE [Suspect]
     Indication: DROP ATTACKS
  13. LAMOTRIGINE [Suspect]
     Indication: COMPLEX PARTIAL SEIZURES
  14. PHENYTOIN [Suspect]
     Indication: PARTIAL SEIZURES
     Dosage: 375 MG
  15. PHENYTOIN [Suspect]
     Indication: DROP ATTACKS
  16. LAMOTRIGINE [Suspect]
     Indication: DROP ATTACKS
  17. RUFINAMIDE [Suspect]
     Indication: COMPLEX PARTIAL SEIZURES
  18. RUFINAMIDE [Suspect]
     Indication: GRAND MAL CONVULSION
  19. LAMOTRIGINE [Suspect]
     Indication: PARTIAL SEIZURES
     Dosage: 500 MG
  20. CLONAZEPAM [Suspect]
     Indication: PARTIAL SEIZURES
     Dosage: 2 MG

REACTIONS (4)
  - BALANCE DISORDER [None]
  - DRUG LEVEL INCREASED [None]
  - DIPLOPIA [None]
  - DIZZINESS [None]
